FAERS Safety Report 9566062 (Version 2)
Quarter: 2014Q1

REPORT INFORMATION
  Report Type: Spontaneous
  Country: US (occurrence: US)
  Receive Date: 20130930
  Receipt Date: 20140317
  Transmission Date: 20141002
  Serious: Yes (Hospitalization)
  Sender: FDA-Public Use
  Company Number: US-B.I. PHARMACEUTICALS,INC./RIDGEFIELD-2013-BI-30288BP

PATIENT
  Sex: Female
  Weight: 54.43 kg

DRUGS (17)
  1. PRADAXA [Suspect]
     Indication: ATRIAL FIBRILLATION
     Dosage: 300 MG
     Route: 048
     Dates: start: 20110830, end: 20111007
  2. AMIODARONE [Concomitant]
     Route: 065
  3. CARBIDOPA [Concomitant]
     Route: 065
  4. CITALOPRAM [Concomitant]
     Route: 065
  5. CLONIDINE [Concomitant]
     Route: 065
  6. DIOVAN [Concomitant]
     Route: 065
  7. FAMOTIDINE [Concomitant]
     Route: 065
  8. FUROSEMIDE [Concomitant]
     Route: 065
  9. HUMALOG [Concomitant]
     Route: 065
  10. HYDROCODONE [Concomitant]
     Route: 065
  11. KLOR-CON [Concomitant]
     Route: 065
  12. LISINOPRIL [Concomitant]
     Route: 065
  13. MEGESTROL [Concomitant]
     Route: 065
  14. NITROSTAT [Concomitant]
     Route: 065
  15. PROTONIX [Concomitant]
     Route: 065
  16. METOPROLOL [Concomitant]
     Route: 065
  17. SUFAMETHOXAZOLE [Concomitant]
     Route: 065

REACTIONS (1)
  - Lower gastrointestinal haemorrhage [Unknown]
